FAERS Safety Report 4415010-8 (Version None)
Quarter: 2004Q3

REPORT INFORMATION
  Report Type: 
  Country: None (occurrence: None)
  Receive Date: 20040729
  Receipt Date: 20040716
  Transmission Date: 20050211
  Serious: Yes (Life-Threatening)
  Sender: FDA-Public Use
  Company Number: CH-JNJFOC-20040705129

PATIENT
  Age: 70 Year
  Sex: Male

DRUGS (7)
  1. TRAMADOL HCL [Suspect]
     Indication: PAIN
     Dates: start: 20040501
  2. CIPROFLOXACIN [Suspect]
     Indication: WOUND INFECTION
     Dates: start: 20040525
  3. GABAPENTIN [Suspect]
     Indication: EPILEPSY
     Dates: start: 20040101
  4. FOLIC ACID [Suspect]
  5. MARCUMAR [Concomitant]
  6. NEXIUM [Concomitant]
  7. ACETAMINOPHEN [Concomitant]

REACTIONS (4)
  - DRUG INTERACTION [None]
  - POST PROCEDURAL COMPLICATION [None]
  - POSTOPERATIVE WOUND COMPLICATION [None]
  - STATUS EPILEPTICUS [None]
